FAERS Safety Report 11026190 (Version 1)
Quarter: 2015Q2

REPORT INFORMATION
  Report Type: Spontaneous
  Country: IN (occurrence: None)
  Receive Date: 20150413
  Receipt Date: 20150413
  Transmission Date: 20150821
  Serious: No
  Sender: FDA-Public Use
  Company Number: None

PATIENT
  Age: 25 Year
  Sex: Male
  Weight: 75 kg

DRUGS (2)
  1. TRETIVA [Suspect]
     Active Substance: ISOTRETINOIN
     Indication: ACNE
     Route: 048
  2. BRAIN RELATED MEDICINES [Concomitant]

REACTIONS (2)
  - Ear congestion [None]
  - Headache [None]

NARRATIVE: CASE EVENT DATE: 20110527
